FAERS Safety Report 8392065-X (Version None)
Quarter: 2012Q2

REPORT INFORMATION
  Report Type: 
  Country: None (occurrence: None)
  Receive Date: 20120529
  Receipt Date: 20120522
  Transmission Date: 20120825
  Serious: Yes (Hospitalization)
  Sender: FDA-Public Use
  Company Number: FR-ROCHE-1071489

PATIENT
  Sex: Female

DRUGS (39)
  1. TRAMADOL HCL [Concomitant]
  2. TAZOBACTAM [Suspect]
     Route: 042
     Dates: start: 20120424
  3. CANCIDAS [Concomitant]
     Route: 042
     Dates: start: 20120429
  4. ERYTHROMYCIN [Concomitant]
     Dates: start: 20120514
  5. ZOCOR [Concomitant]
  6. CINACALCET HYDROCHLORIDE [Concomitant]
  7. 1-ALPHA [Concomitant]
  8. TAZOBACTAM [Suspect]
     Route: 042
     Dates: start: 20120501
  9. TAZOBACTAM [Suspect]
     Route: 042
     Dates: start: 20120502
  10. ACETAMINOPHEN [Concomitant]
  11. PREDNISOLONE [Concomitant]
  12. LERCANIDIPINE [Concomitant]
  13. ROCEPHIN [Suspect]
     Route: 042
     Dates: start: 20120425, end: 20120429
  14. FLUCONAZOLE [Suspect]
     Indication: SEPTIC SHOCK
     Route: 042
     Dates: start: 20120421, end: 20120429
  15. PERINDOPRIL ERBUMINE [Concomitant]
  16. ROCEPHIN [Suspect]
     Indication: SEPTIC SHOCK
     Route: 042
     Dates: start: 20120408, end: 20120412
  17. VANCOMYCIN [Suspect]
     Indication: SEPTIC SHOCK
     Route: 042
     Dates: start: 20120424, end: 20120505
  18. ERYTHROMYCIN [Concomitant]
     Dates: start: 20120406, end: 20120427
  19. ZYVOX [Concomitant]
     Dates: start: 20120504, end: 20120511
  20. ATENOLOL [Concomitant]
  21. VITAMIN D [Concomitant]
  22. DORIPENEM [Concomitant]
  23. AMIKACIN [Concomitant]
     Route: 042
     Dates: start: 20120426, end: 20120504
  24. ADRENALIN IN OIL INJ [Concomitant]
  25. NEXIUM [Concomitant]
  26. ARANESP [Concomitant]
  27. LEXOMIL [Concomitant]
  28. TAZOBACTAM [Suspect]
     Indication: SEPTIC SHOCK
     Route: 042
     Dates: start: 20120404, end: 20120408
  29. TAZOBACTAM [Suspect]
     Route: 042
     Dates: start: 20120425
  30. CANCIDAS [Concomitant]
     Route: 042
     Dates: start: 20120416, end: 20120420
  31. NOREPINEPHRINE BITARTRATE [Concomitant]
  32. CORDARONE [Concomitant]
  33. NEORAL [Concomitant]
  34. LASIX [Concomitant]
  35. IRBESARTAN [Concomitant]
  36. RENAGEL [Concomitant]
  37. AMIKACIN [Concomitant]
     Route: 042
     Dates: start: 20120404, end: 20120409
  38. ZYVOX [Concomitant]
     Dates: start: 20120424
  39. CELL CEPT [Concomitant]

REACTIONS (2)
  - AGRANULOCYTOSIS [None]
  - DRUG RASH WITH EOSINOPHILIA AND SYSTEMIC SYMPTOMS [None]
